FAERS Safety Report 9431486 (Version 1)
Quarter: 2013Q3

REPORT INFORMATION
  Report Type: Report from Study
  Country: DE (occurrence: DE)
  Receive Date: 20130730
  Receipt Date: 20130730
  Transmission Date: 20140515
  Serious: Yes (Hospitalization, Other)
  Sender: FDA-Public Use
  Company Number: DE-ROCHE-1068670

PATIENT
  Age: 46 Year
  Sex: Female
  Weight: 76 kg

DRUGS (7)
  1. BEVACIZUMAB [Suspect]
     Indication: BRONCHIAL CARCINOMA
     Route: 042
     Dates: start: 20120117
  2. CISPLATIN [Concomitant]
     Indication: BRONCHIAL CARCINOMA
     Route: 042
     Dates: start: 20120117, end: 20120207
  3. VINORELBINA [Concomitant]
     Indication: BRONCHIAL CARCINOMA
     Route: 042
     Dates: start: 20120117, end: 20120207
  4. DEXAMETHASON [Concomitant]
     Dosage: PRE-MEDICATION
     Route: 065
  5. ALOXI [Concomitant]
     Dosage: FORM: AMPULE
     Route: 065
  6. ONDANSETRON [Concomitant]
     Route: 048
  7. VERGENTAN [Concomitant]
     Dosage: AMPULE
     Route: 065

REACTIONS (7)
  - Pulmonary embolism [Recovered/Resolved]
  - Dyspnoea [Recovered/Resolved]
  - Tachycardia [Recovered/Resolved]
  - Cardiac ventricular disorder [Unknown]
  - Pulmonary embolism [Unknown]
  - Sinus tachycardia [Unknown]
  - Hypertension [Recovered/Resolved]
